FAERS Safety Report 5119453-9 (Version None)
Quarter: 2006Q3

REPORT INFORMATION
  Report Type: 
  Country: None (occurrence: None)
  Receive Date: 20060928
  Receipt Date: 20060918
  Transmission Date: 20061208
  Serious: Yes (Other)
  Sender: FDA-Public Use
  Company Number: 2006112199

PATIENT
  Age: 52 Year
  Sex: Female
  Weight: 61.2356 kg

DRUGS (2)
  1. ZOLOFT [Suspect]
     Indication: DEPRESSION
     Dosage: 100 MG (100 MG, 1 IN 1 D)
  2. SOMA [Suspect]
     Indication: BACK PAIN

REACTIONS (4)
  - BALANCE DISORDER [None]
  - DRUG INTERACTION [None]
  - DYSARTHRIA [None]
  - HYPOACUSIS [None]
